FAERS Safety Report 9183436 (Version 1)
Quarter: 2012Q4

REPORT INFORMATION
  Report Type: 
  Country: FR (occurrence: FR)
  Receive Date: 20121101
  Receipt Date: 20121101
  Transmission Date: 20130627
  Serious: Yes (Hospitalization)
  Sender: FDA-Public Use
  Company Number: FR-ASTRAZENECA-2012SE81321

PATIENT
  Age: 29 Year
  Sex: Male

DRUGS (2)
  1. INEXIUM [Suspect]
     Route: 048
     Dates: start: 20120820, end: 201209
  2. POTASSIUM BICARBONATE [Concomitant]

REACTIONS (2)
  - Nephrolithiasis [Unknown]
  - pH urine increased [Recovered/Resolved]
